FAERS Safety Report 7429568-8 (Version None)
Quarter: 2011Q2

REPORT INFORMATION
  Report Type: 
  Country: None (occurrence: None)
  Receive Date: 20110421
  Receipt Date: 20110414
  Transmission Date: 20111010
  Serious: Yes (Other)
  Sender: FDA-Public Use
  Company Number: A0923048A

PATIENT
  Sex: Female
  Weight: 54.5 kg

DRUGS (1)
  1. ADVAIR HFA [Suspect]
     Indication: PNEUMONIA
     Dosage: 1PUFF TWICE PER DAY
     Route: 055
     Dates: start: 20100101

REACTIONS (4)
  - PULMONARY MASS [None]
  - COUGH [None]
  - DYSPHONIA [None]
  - PNEUMONIA [None]
